FAERS Safety Report 11954121 (Version 3)
Quarter: 2016Q1

REPORT INFORMATION
  Report Type: Spontaneous
  Country: US (occurrence: US)
  Receive Date: 20160126
  Receipt Date: 20160223
  Transmission Date: 20160526
  Serious: Yes (Other)
  Sender: FDA-Public Use
  Company Number: US-009507513-1601USA008682

PATIENT
  Sex: Female

DRUGS (11)
  1. PLAVIX [Concomitant]
     Active Substance: CLOPIDOGREL BISULFATE
  2. ALPHAGAN P [Concomitant]
     Active Substance: BRIMONIDINE TARTRATE
  3. TOPROL XL [Concomitant]
     Active Substance: METOPROLOL SUCCINATE
  4. CAPTOPRIL. [Concomitant]
     Active Substance: CAPTOPRIL
  5. AMARYL [Concomitant]
     Active Substance: GLIMEPIRIDE
  6. TRUSOPT [Suspect]
     Active Substance: DORZOLAMIDE HYDROCHLORIDE
     Indication: GLAUCOMA
     Dosage: 2 GTT, TID
     Route: 047
     Dates: start: 2013
  7. TRUSOPT [Suspect]
     Active Substance: DORZOLAMIDE HYDROCHLORIDE
     Dosage: 2 GTT, BID
     Route: 047
  8. CLONIDINE. [Concomitant]
     Active Substance: CLONIDINE
  9. DIOVAN [Concomitant]
     Active Substance: VALSARTAN
  10. POTASSIUM (UNSPECIFIED) [Concomitant]
     Active Substance: POTASSIUM
  11. ZOCOR [Concomitant]
     Active Substance: SIMVASTATIN
     Route: 048

REACTIONS (6)
  - Eye irritation [Recovered/Resolved]
  - Eye haemorrhage [Recovered/Resolved]
  - Drug dose omission [Unknown]
  - Retinal detachment [Recovered/Resolved]
  - Nausea [Recovered/Resolved]
  - Dysgeusia [Recovered/Resolved]

NARRATIVE: CASE EVENT DATE: 2013
